FAERS Safety Report 7396110-X (Version None)
Quarter: 2011Q2

REPORT INFORMATION
  Report Type: 
  Country: None (occurrence: None)
  Receive Date: 20110406
  Receipt Date: 20091009
  Transmission Date: 20111010
  Serious: Yes (Death, Hospitalization, Other)
  Sender: FDA-Public Use
  Company Number: US-BAYER-200935516NA

PATIENT
  Sex: Male
  Weight: 77 kg

DRUGS (12)
  1. FRESH FROZEN PLASMA [Concomitant]
     Dosage: 2 UNITS
     Dates: start: 19950515
  2. HEPARIN SODIUM [Concomitant]
     Dosage: UNK
     Route: 042
     Dates: start: 19950515, end: 19950515
  3. RED BLOOD CELLS, CONCENTRATED [Concomitant]
     Dosage: 5 UNITS
     Dates: start: 19950515
  4. METHYLPREDNISOLONE ACETATE [Concomitant]
     Dosage: UNK
     Route: 042
     Dates: start: 19950515, end: 19950515
  5. NITROGLYCERIN [Concomitant]
     Dosage: AS NEEDED
     Route: 060
  6. EPINEPHRINE [Concomitant]
     Dosage: UNK
     Route: 042
     Dates: start: 19950515, end: 19950515
  7. MICRONASE [Concomitant]
     Dosage: UNK
     Route: 048
  8. ACETYLSALICYLIC ACID SRT [Concomitant]
     Route: 048
  9. TRASYLOL [Suspect]
     Indication: CORONARY ARTERY BYPASS
     Route: 042
     Dates: start: 19950515
  10. CEFAZOLIN [Concomitant]
     Dosage: UNK
     Route: 042
     Dates: start: 19950515, end: 19950515
  11. LOPRESSOR [Concomitant]
     Route: 048
  12. NITRO-BID [Concomitant]
     Route: 048

REACTIONS (14)
  - UNEVALUABLE EVENT [None]
  - DEATH [None]
  - FEAR [None]
  - ANHEDONIA [None]
  - RENAL INJURY [None]
  - PAIN [None]
  - RENAL IMPAIRMENT [None]
  - EMOTIONAL DISTRESS [None]
  - RENAL FAILURE [None]
  - STRESS [None]
  - MULTI-ORGAN FAILURE [None]
  - ANXIETY [None]
  - INJURY [None]
  - CEREBROVASCULAR ACCIDENT [None]
